FAERS Safety Report 8766873 (Version 3)
Quarter: 2013Q3

REPORT INFORMATION
  Report Type: Spontaneous
  Country: US (occurrence: US)
  Receive Date: 20120904
  Receipt Date: 20130823
  Transmission Date: 20140515
  Serious: Yes (Hospitalization, Disabling)
  Sender: FDA-Public Use
  Company Number: US-US-EMD SERONO, INC.-7157582

PATIENT
  Age: 50 Year
  Sex: Male

DRUGS (1)
  1. REBIF [Suspect]
     Indication: MULTIPLE SCLEROSIS
     Route: 058
     Dates: start: 20060725

REACTIONS (5)
  - Urosepsis [Unknown]
  - Urinary tract infection [Unknown]
  - Bedridden [Not Recovered/Not Resolved]
  - Multiple sclerosis relapse [Unknown]
  - Dysarthria [Unknown]
